FAERS Safety Report 8542133-4 (Version None)
Quarter: 2012Q3

REPORT INFORMATION
  Report Type: 
  Country: None (occurrence: None)
  Receive Date: 20120726
  Receipt Date: 20111014
  Transmission Date: 20120928
  Serious: No
  Sender: FDA-Public Use
  Company Number: US-ASTRAZENECA-2011SE61996

PATIENT
  Age: 27 Year
  Sex: Female

DRUGS (5)
  1. ZYPREXA [Concomitant]
  2. TRILEPTAL [Concomitant]
  3. SEROQUEL XR [Suspect]
     Indication: SCHIZOAFFECTIVE DISORDER
     Route: 048
     Dates: start: 20110901
  4. BUSPAR [Concomitant]
  5. PROPRANOLOL [Concomitant]

REACTIONS (2)
  - DRUG DOSE OMISSION [None]
  - HALLUCINATION [None]
